FAERS Safety Report 5449879-5 (Version None)
Quarter: 2007Q3

REPORT INFORMATION
  Report Type: 
  Country: None (occurrence: None)
  Receive Date: 20070907
  Receipt Date: 20070907
  Transmission Date: 20080115
  Serious: Yes (Life-Threatening, Hospitalization)
  Sender: FDA-Public Use
  Company Number: None

PATIENT
  Age: 41 Year
  Sex: Female
  Weight: 104.3273 kg

DRUGS (3)
  1. LITHIUM [Suspect]
     Indication: BIPOLAR DISORDER
     Dosage: 300 MG TWICE A DAY
     Dates: start: 20070705, end: 20070821
  2. HALDOL [Suspect]
     Dosage: ONE SH
  3. RISPERDAL [Suspect]
     Indication: BIPOLAR I DISORDER
     Dosage: 3 MG TWICE A DAY
     Dates: start: 20070705, end: 20070821

REACTIONS (7)
  - ARTHROPATHY [None]
  - BLOOD GLUCOSE DECREASED [None]
  - CONVULSION [None]
  - DIABETES MELLITUS [None]
  - DYSPHAGIA [None]
  - DYSPNOEA [None]
  - MUSCULAR WEAKNESS [None]
